FAERS Safety Report 4978489-9 (Version None)
Quarter: 2006Q2

REPORT INFORMATION
  Report Type: 
  Country: None (occurrence: None)
  Receive Date: 20060420
  Receipt Date: 20000706
  Transmission Date: 20061013
  Serious: Yes (Hospitalization, Disabling)
  Sender: FDA-Public Use
  Company Number: FR-ABBOTT-00P-056-0095019-00

PATIENT
  Age: 52 Year
  Sex: Female

DRUGS (6)
  1. DEPAKENE [Suspect]
     Indication: EPILEPSY
     Route: 048
     Dates: start: 19850101, end: 20000329
  2. DEPAKENE [Suspect]
  3. MEPROBAMATE [Concomitant]
     Indication: DRUG USE FOR UNKNOWN INDICATION
  4. AMIODARONE HCL [Concomitant]
     Indication: DRUG USE FOR UNKNOWN INDICATION
  5. PIRACETAM [Concomitant]
     Indication: DRUG USE FOR UNKNOWN INDICATION
  6. LACTULOSE [Concomitant]
     Indication: DRUG USE FOR UNKNOWN INDICATION

REACTIONS (8)
  - BRAIN STEM SYNDROME [None]
  - COGNITIVE DISORDER [None]
  - DEMENTIA [None]
  - EXTRAPYRAMIDAL DISORDER [None]
  - FRACTURE [None]
  - PARKINSONISM [None]
  - SKIN ULCER [None]
  - TREMOR [None]
